FAERS Safety Report 17388419 (Version 1)
Quarter: 2020Q1

REPORT INFORMATION
  Report Type: Report from Study
  Country: JP (occurrence: JP)
  Receive Date: 20200207
  Receipt Date: 20200207
  Transmission Date: 20200409
  Serious: Yes (Other)
  Sender: FDA-Public Use
  Company Number: JP-MYLANLABS-2020M1013341

PATIENT
  Sex: Male

DRUGS (6)
  1. LENALIDOMIDE [Suspect]
     Active Substance: LENALIDOMIDE
     Indication: PLASMA CELL MYELOMA
     Dosage: 25 MILLIGRAM, QD, ADMINISTERED ON DAYS 1-21 OF A 28-DAY CYCLE (RD REGIMEN)
     Route: 065
  2. ACICLOVIR [Concomitant]
     Active Substance: ACYCLOVIR
     Indication: ANTIVIRAL PROPHYLAXIS
     Route: 065
  3. DEXAMETHASONE. [Suspect]
     Active Substance: DEXAMETHASONE
     Indication: PLASMA CELL MYELOMA
     Dosage: ADMINISTERED ON DAYS 1, 8, 15 AND 22 OF A 28-DAY CYCLE (RD REGIMEN)
     Route: 065
  4. MELPHALAN. [Suspect]
     Active Substance: MELPHALAN
     Indication: PLASMA CELL MYELOMA
     Dosage: 6 MILLIGRAM/SQ. METER, ADMINISTERED ON DAYS 1-4 OF A 35-DAY CYCLE FOR 4 CYCLES (VMP REGIMEN)
     Route: 048
  5. BORTEZOMIB. [Suspect]
     Active Substance: BORTEZOMIB
     Indication: PLASMA CELL MYELOMA
     Dosage: 1.3 MILLIGRAM/SQ. METER, ADMINISTERED AON DAYS 1, 8, 15 AND 22 OF A 35-DAY CYCLE FOR 4 CYCLES (VMP R
     Route: 065
  6. PREDNISOLONE. [Suspect]
     Active Substance: PREDNISOLONE
     Indication: PLASMA CELL MYELOMA
     Dosage: 60 MILLIGRAM/SQ. METER, ADMINISTERED ON DAYS 1-4 OF A 35-DAY CYCLE FOR 4 CYCLES (VMP REGIMEN)
     Route: 048

REACTIONS (1)
  - Drug ineffective [Unknown]
